FAERS Safety Report 7680517-7 (Version None)
Quarter: 2011Q3

REPORT INFORMATION
  Report Type: 
  Country: None (occurrence: None)
  Receive Date: 20110812
  Receipt Date: 20110801
  Transmission Date: 20111222
  Serious: Yes (Hospitalization)
  Sender: FDA-Public Use
  Company Number: US-JNJFOC-20090202659

PATIENT
  Sex: Female
  Weight: 46.9 kg

DRUGS (8)
  1. PREDNISONE [Concomitant]
  2. METHOTREXATE [Concomitant]
  3. REMICADE [Suspect]
     Route: 042
     Dates: start: 20070814
  4. REMICADE [Suspect]
     Route: 042
     Dates: start: 20050812
  5. REMICADE [Suspect]
     Route: 042
     Dates: start: 20071006
  6. REMICADE [Suspect]
     Indication: CROHN'S DISEASE
     Route: 042
     Dates: start: 20050812
  7. REMICADE [Suspect]
     Indication: INFLAMMATORY BOWEL DISEASE
     Route: 042
     Dates: start: 20070814
  8. REMICADE [Suspect]
     Route: 042
     Dates: start: 20071006

REACTIONS (1)
  - CROHN'S DISEASE [None]
